FAERS Safety Report 4527932-8 (Version None)
Quarter: 2004Q4

REPORT INFORMATION
  Report Type: 
  Country: None (occurrence: None)
  Receive Date: 20041215
  Receipt Date: 20041207
  Transmission Date: 20050328
  Serious: Yes (Death)
  Sender: FDA-Public Use
  Company Number: JP-BRISTOL-MYERS SQUIBB COMPANY-12788873

PATIENT
  Age: 50 Year
  Sex: Female

DRUGS (2)
  1. PARAPLATIN [Suspect]
     Indication: UTERINE CANCER
     Route: 042
     Dates: start: 20041007, end: 20041007
  2. TAXOL [Suspect]
     Indication: UTERINE CANCER
     Dosage: THERAPY FROM 07-OCT-2004 TO 21-OCT-2004 (3 DAYS)
     Route: 042
     Dates: start: 20041021, end: 20041021

REACTIONS (2)
  - INTESTINAL OBSTRUCTION [None]
  - PULMONARY THROMBOSIS [None]
